FAERS Safety Report 7736303-2 (Version None)
Quarter: 2011Q3

REPORT INFORMATION
  Report Type: 
  Country: None (occurrence: None)
  Receive Date: 20110908
  Receipt Date: 20110831
  Transmission Date: 20111222
  Serious: Yes (Death, Hospitalization)
  Sender: FDA-Public Use
  Company Number: JP-BAYER-2011-063086

PATIENT
  Age: 76 Year
  Sex: Female
  Weight: 55 kg

DRUGS (9)
  1. NEXAVAR [Suspect]
     Indication: HEPATIC NEOPLASM MALIGNANT
     Dosage: DAILY DOSE 800 MG
     Route: 048
     Dates: start: 20100409, end: 20100415
  2. NEXAVAR [Suspect]
     Dosage: 400 MG, QD
     Route: 048
     Dates: start: 20110401, end: 20110628
  3. ALDACTONE [Concomitant]
     Indication: ASCITES
     Dosage: 25 MG, QD
     Route: 048
     Dates: start: 20110429, end: 20110628
  4. LASIX [Concomitant]
     Dosage: 20 MG, QD
     Route: 042
     Dates: start: 20110628, end: 20110708
  5. CLOSTRIDIUM BUTYRICUM [Concomitant]
     Indication: DIARRHOEA
     Dosage: 3 DF, QD
     Route: 048
     Dates: start: 20101029, end: 20110628
  6. NEXAVAR [Suspect]
     Dosage: 600 MG, QD
     Route: 048
     Dates: start: 20100827, end: 20110331
  7. LASIX [Concomitant]
     Indication: ASCITES
     Dosage: 1 DF, QD
     Route: 048
     Dates: start: 20110107, end: 20110628
  8. NEXAVAR [Suspect]
     Dosage: 400 MG, QD
     Route: 048
     Dates: start: 20100416, end: 20100826
  9. PHELLOBERIN A [BERBERINE HYDROCHLORIDE,GERANIUM THUNBERGII, HERB E [Concomitant]
     Indication: DIARRHOEA
     Dosage: 6 DF, QD
     Route: 048
     Dates: start: 20100702, end: 20110628

REACTIONS (5)
  - LIVER CARCINOMA RUPTURED [None]
  - DECREASED APPETITE [None]
  - ABDOMINAL PAIN [None]
  - NAUSEA [None]
  - GASTRIC ULCER [None]
